FAERS Safety Report 11417258 (Version 5)
Quarter: 2015Q4

REPORT INFORMATION
  Report Type: Spontaneous
  Country: US (occurrence: US)
  Receive Date: 20150825
  Receipt Date: 20151124
  Transmission Date: 20160304
  Serious: No
  Sender: FDA-Public Use
  Company Number: US-PFIZER INC-2015269195

PATIENT
  Age: 71 Year
  Sex: Female
  Weight: 81 kg

DRUGS (6)
  1. SYNTHROID [Concomitant]
     Active Substance: LEVOTHYROXINE SODIUM
     Indication: HYPOTHYROIDISM
     Dosage: 88 ?G, UNK
     Dates: start: 2010
  2. FASLODEX [Suspect]
     Active Substance: FULVESTRANT
     Indication: BREAST CANCER METASTATIC
     Dosage: 500 MG, MONTHLY
  3. IBRANCE [Suspect]
     Active Substance: PALBOCICLIB
     Dosage: 125 MG, CYCLIC 2XDAY
     Route: 048
     Dates: end: 20150826
  4. IBRANCE [Suspect]
     Active Substance: PALBOCICLIB
     Indication: BREAST CANCER METASTATIC
     Dosage: 125 MG, 1X/DAY
     Dates: start: 201506, end: 2015
  5. IBRANCE [Suspect]
     Active Substance: PALBOCICLIB
     Dosage: 125 MG, 1X/DAY
     Dates: start: 2015
  6. IBRANCE [Suspect]
     Active Substance: PALBOCICLIB
     Dosage: 150 MG, 2X/DAY
     Route: 048

REACTIONS (8)
  - Breast cancer metastatic [Unknown]
  - Abdominal pain [Unknown]
  - Malaise [Recovered/Resolved]
  - White blood cell count decreased [Recovered/Resolved]
  - Nausea [Recovered/Resolved]
  - Disease progression [Unknown]
  - Product use issue [Recovered/Resolved]
  - Decreased appetite [Unknown]

NARRATIVE: CASE EVENT DATE: 2015
